FAERS Safety Report 21877585 (Version 1)
Quarter: 2023Q1

REPORT INFORMATION
  Report Type: Spontaneous
  Country: US (occurrence: US)
  Receive Date: 20230118
  Receipt Date: 20230118
  Transmission Date: 20230417
  Serious: No
  Sender: FDA-Public Use
  Company Number: US-SANOFI-01444745

PATIENT
  Age: 64 Year
  Sex: Male

DRUGS (1)
  1. DUPIXENT [Suspect]
     Active Substance: DUPILUMAB
     Indication: Nasal polyps
     Dosage: UNK
     Dates: start: 20220203

REACTIONS (3)
  - Erythema nodosum [Unknown]
  - Myalgia [Unknown]
  - Eosinophil count abnormal [Unknown]

NARRATIVE: CASE EVENT DATE: 20220101
